FAERS Safety Report 20069859 (Version 1)
Quarter: 2021Q4

REPORT INFORMATION
  Report Type: Spontaneous
  Country: US (occurrence: None)
  Receive Date: 20211113
  Receipt Date: 20211113
  Transmission Date: 20220303
  Serious: Yes (Life-Threatening)
  Sender: FDA-Public Use
  Company Number: None

PATIENT
  Age: 66 Year
  Sex: Male
  Weight: 107.55 kg

DRUGS (1)
  1. VICKS SINEX SEVERE [Suspect]
     Active Substance: OXYMETAZOLINE HYDROCHLORIDE
     Indication: Sinus disorder
     Dosage: OTHER QUANTITY : 1 SPRAY(S);?FREQUENCY : EVERY 12 HOURS;?
     Route: 055
     Dates: start: 20211113, end: 20211113

REACTIONS (1)
  - Atrial fibrillation [None]

NARRATIVE: CASE EVENT DATE: 20211113
